FAERS Safety Report 21927629 (Version 1)
Quarter: 2023Q1

REPORT INFORMATION
  Report Type: Spontaneous
  Country: ES (occurrence: ES)
  Receive Date: 20230130
  Receipt Date: 20230130
  Transmission Date: 20230417
  Serious: Yes (Other)
  Sender: FDA-Public Use
  Company Number: ES-CELLTRION HEALTHCARE HUNGARY KFT-2022ES021588

PATIENT
  Age: 80 Year
  Sex: Male

DRUGS (4)
  1. TRASTUZUMAB [Suspect]
     Active Substance: TRASTUZUMAB
     Indication: Extramammary Paget^s disease
     Dosage: 600 MILLIGRAM EVERY 21 DAYS
     Route: 058
  2. TRASTUZUMAB [Suspect]
     Active Substance: TRASTUZUMAB
     Indication: Adenocarcinoma
  3. PERTUZUMAB [Suspect]
     Active Substance: PERTUZUMAB
     Indication: Extramammary Paget^s disease
     Dosage: LOADING DOSE 840 MG,FOLLOWED BY 420MG EVERY 3 WK
     Route: 042
  4. PERTUZUMAB [Suspect]
     Active Substance: PERTUZUMAB
     Indication: Adenocarcinoma

REACTIONS (4)
  - Adenocarcinoma [Recovering/Resolving]
  - Extramammary Paget^s disease [Recovering/Resolving]
  - Drug effective for unapproved indication [Unknown]
  - Off label use [Unknown]
